FAERS Safety Report 11355309 (Version 2)
Quarter: 2015Q3

REPORT INFORMATION
  Report Type: Spontaneous
  Country: AT (occurrence: AT)
  Receive Date: 20150807
  Receipt Date: 20150813
  Transmission Date: 20151125
  Serious: Yes (Life-Threatening, Hospitalization, Other)
  Sender: FDA-Public Use
  Company Number: PHHY2015AT094482

PATIENT
  Sex: Female

DRUGS (4)
  1. XALKORI [Concomitant]
     Active Substance: CRIZOTINIB
     Indication: METASTASES TO LUNG
     Dosage: 200 MG, BID
     Route: 048
     Dates: start: 201503
  2. ZYKADIA [Suspect]
     Active Substance: CERITINIB
     Indication: LUNG ADENOCARCINOMA
     Dosage: 5 DF, QD
     Route: 048
     Dates: start: 20150720, end: 20150724
  3. ZYKADIA [Suspect]
     Active Substance: CERITINIB
     Indication: METASTASES TO LUNG
  4. XALKORI [Concomitant]
     Active Substance: CRIZOTINIB
     Indication: LUNG ADENOCARCINOMA
     Dosage: 250 MG, BID
     Route: 048
     Dates: start: 201502, end: 201504

REACTIONS (13)
  - Pain [Unknown]
  - Normochromic normocytic anaemia [Unknown]
  - Terminal state [Not Recovered/Not Resolved]
  - Asthenia [Unknown]
  - Feeling abnormal [Not Recovered/Not Resolved]
  - Lung adenocarcinoma [Unknown]
  - Diarrhoea [Unknown]
  - Malignant neoplasm progression [Unknown]
  - Cachexia [Unknown]
  - Pneumonia [Unknown]
  - Gastrointestinal disorder [Unknown]
  - Lung disorder [Unknown]
  - Nausea [Unknown]

NARRATIVE: CASE EVENT DATE: 20150727
